FAERS Safety Report 5880044-3 (Version None)
Quarter: 2008Q3

REPORT INFORMATION
  Report Type: 
  Country: None (occurrence: None)
  Receive Date: 20080912
  Receipt Date: 20080908
  Transmission Date: 20090109
  Serious: Yes (Death, Other)
  Sender: FDA-Public Use
  Company Number: IT-ABBOTT-08P-083-0472972-00

PATIENT
  Sex: Male

DRUGS (3)
  1. VECLAM [Suspect]
     Indication: INFECTIOUS MONONUCLEOSIS
     Route: 048
     Dates: start: 20080417, end: 20080417
  2. VECLAM [Suspect]
  3. NIMESULIDE [Suspect]
     Indication: DRUG USE FOR UNKNOWN INDICATION
     Dates: start: 20080417, end: 20080417

REACTIONS (10)
  - ANAPHYLACTIC SHOCK [None]
  - CARDIAC ARREST [None]
  - CYANOSIS [None]
  - DEPRESSED LEVEL OF CONSCIOUSNESS [None]
  - METABOLIC ACIDOSIS [None]
  - MYDRIASIS [None]
  - PHARYNGEAL OEDEMA [None]
  - PULMONARY HAEMORRHAGE [None]
  - PULMONARY OEDEMA [None]
  - RESPIRATORY ACIDOSIS [None]
